FAERS Safety Report 17247833 (Version 1)
Quarter: 2019Q4

REPORT INFORMATION
  Report Type: Spontaneous
  Country: US (occurrence: US)
  Receive Date: 20191213
  Receipt Date: 20191213
  Transmission Date: 20200122
  Serious: No
  Sender: FDA-Public Use
  Company Number: None

PATIENT
  Sex: Female

DRUGS (1)
  1. PROGESTERONE/OIL 50MG/ML AUROMEDICAS PHARMA [Suspect]
     Active Substance: PROGESTERONE
     Indication: INFERTILITY
     Route: 030
     Dates: start: 20191121, end: 20191125

REACTIONS (6)
  - Pain [None]
  - Pyrexia [None]
  - Headache [None]
  - Injection site pain [None]
  - Chills [None]
  - Myalgia [None]
